FAERS Safety Report 4674658-6 (Version None)
Quarter: 2005Q2

REPORT INFORMATION
  Report Type: 
  Country: None (occurrence: None)
  Receive Date: 20050526
  Receipt Date: 20010124
  Transmission Date: 20051028
  Serious: Yes (Death)
  Sender: FDA-Public Use
  Company Number: IT-GLAXOSMITHKLINE-B0097314A

PATIENT
  Age: 40 Year
  Sex: Male

DRUGS (3)
  1. ZANAMIVIR [Suspect]
     Route: 055
     Dates: start: 20010122
  2. VIVIN C [Concomitant]
     Dates: start: 20010122
  3. ANTIHISTAMINE [Concomitant]

REACTIONS (4)
  - ACUTE PULMONARY OEDEMA [None]
  - FOAMING AT MOUTH [None]
  - PULMONARY HAEMORRHAGE [None]
  - RHINORRHOEA [None]
